FAERS Safety Report 10830316 (Version 1)
Quarter: 2015Q1

REPORT INFORMATION
  Report Type: Spontaneous
  Country: RU (occurrence: RU)
  Receive Date: 20150219
  Receipt Date: 20150219
  Transmission Date: 20150721
  Serious: Yes (Other)
  Sender: FDA-Public Use
  Company Number: RU-009507513-1502RUS007941

PATIENT
  Age: 62 Year
  Sex: Female

DRUGS (3)
  1. OVESTIN [Suspect]
     Active Substance: ESTRIOL
     Indication: ATROPHIC VULVOVAGINITIS
     Dosage: 0.5 MG, BIW
     Route: 067
     Dates: start: 2011, end: 201410
  2. OVESTIN [Suspect]
     Active Substance: ESTRIOL
     Dosage: 0.5 MG, BIW
     Route: 067
     Dates: start: 201412
  3. OVESTIN [Suspect]
     Active Substance: ESTRIOL
     Dosage: 0.5 MG, BIW
     Route: 067
     Dates: start: 201410, end: 201412

REACTIONS (1)
  - Vulvovaginal candidiasis [Recovered/Resolved]

NARRATIVE: CASE EVENT DATE: 201410
